FAERS Safety Report 5412206-3 (Version None)
Quarter: 2007Q3

REPORT INFORMATION
  Report Type: 
  Country: None (occurrence: None)
  Receive Date: 20070713
  Receipt Date: 20070514
  Transmission Date: 20080115
  Serious: No
  Sender: FDA-Public Use
  Company Number: 2007SP001789

PATIENT
  Age: 65 Year
  Sex: Male
  Weight: 88.4514 kg

DRUGS (5)
  1. LUNESTA [Suspect]
     Indication: INSOMNIA
     Dosage: 1 MG; ;ORAL
     Route: 048
     Dates: start: 20070505, end: 20070501
  2. HYZAAR [Concomitant]
  3. SOMA [Concomitant]
  4. LYRICA [Concomitant]
  5. GABAPENTIN [Concomitant]

REACTIONS (1)
  - PARADOXICAL DRUG REACTION [None]
